FAERS Safety Report 7110137-4 (Version None)
Quarter: 2010Q4

REPORT INFORMATION
  Report Type: 
  Country: None (occurrence: None)
  Receive Date: 20101118
  Receipt Date: 20101116
  Transmission Date: 20110411
  Serious: Yes (Other)
  Sender: FDA-Public Use
  Company Number: GB-BAYER-201046962GPV

PATIENT
  Age: 89 Year
  Sex: Male

DRUGS (3)
  1. ASPIRIN [Suspect]
     Indication: ACUTE CORONARY SYNDROME
  2. CLOPIDOGREL [Suspect]
     Indication: ACUTE CORONARY SYNDROME
  3. HEPARIN [Suspect]
     Indication: ACUTE CORONARY SYNDROME

REACTIONS (10)
  - ANEURYSM RUPTURED [None]
  - AREFLEXIA [None]
  - ARTHRALGIA [None]
  - HYPOAESTHESIA [None]
  - JOINT STIFFNESS [None]
  - MUSCLE HAEMORRHAGE [None]
  - MUSCULAR WEAKNESS [None]
  - MUSCULOSKELETAL PAIN [None]
  - NERVE COMPRESSION [None]
  - SCIATICA [None]
